FAERS Safety Report 23524174 (Version 2)
Quarter: 2024Q1

REPORT INFORMATION
  Report Type: Spontaneous
  Country: US (occurrence: US)
  Receive Date: 20240214
  Receipt Date: 20240220
  Transmission Date: 20240409
  Serious: No
  Sender: FDA-Public Use
  Company Number: US-PFIZER INC-202400039760

PATIENT
  Age: 70 Year
  Sex: Female
  Weight: 71.202 kg

DRUGS (1)
  1. PAXLOVID [Suspect]
     Active Substance: NIRMATRELVIR\RITONAVIR
     Indication: COVID-19 treatment
     Dosage: 1 DF, 2X/DAY (TWO OF THE NIR TABLET 150 MG EACH AND ONE OF THE RITONAVIR 100 MG)
     Route: 048
     Dates: start: 20240203

REACTIONS (4)
  - Feeling abnormal [Unknown]
  - Fatigue [Unknown]
  - Dissociation [Unknown]
  - Dysgeusia [Unknown]
